FAERS Safety Report 7015445-3 (Version None)
Quarter: 2010Q3

REPORT INFORMATION
  Report Type: 
  Country: None (occurrence: None)
  Receive Date: 20100927
  Receipt Date: 20100915
  Transmission Date: 20110219
  Serious: Yes (Death, Hospitalization)
  Sender: FDA-Public Use
  Company Number: US-ELI_LILLY_AND_COMPANY-US201009004007

PATIENT
  Sex: Female

DRUGS (9)
  1. FORTEO [Suspect]
     Indication: OSTEOPOROSIS
     Dosage: 20 UG, DAILY (1/D)
     Route: 065
  2. NORVASC [Concomitant]
  3. PAXIL [Concomitant]
  4. ZANTAC [Concomitant]
  5. DETROL LA [Concomitant]
  6. MUCINEX [Concomitant]
  7. ALLEGRA [Concomitant]
  8. NEURONTIN [Concomitant]
  9. HYDROCODONE [Concomitant]

REACTIONS (2)
  - CHRONIC OBSTRUCTIVE PULMONARY DISEASE [None]
  - PNEUMONIA [None]
